FAERS Safety Report 7425421-4 (Version None)
Quarter: 2011Q2

REPORT INFORMATION
  Report Type: 
  Country: None (occurrence: None)
  Receive Date: 20110420
  Receipt Date: 20110412
  Transmission Date: 20111010
  Serious: Yes (Other)
  Sender: FDA-Public Use
  Company Number: US-ASTELLAS-2011US001536

PATIENT
  Sex: Male

DRUGS (1)
  1. PROGRAF [Suspect]
     Indication: STEM CELL TRANSPLANT
     Dosage: 1 MG, BID
     Route: 048

REACTIONS (2)
  - DISEASE PROGRESSION [None]
  - OFF LABEL USE [None]
